FAERS Safety Report 10736034 (Version 1)
Quarter: 2015Q1

REPORT INFORMATION
  Report Type: Spontaneous
  Country: US (occurrence: None)
  Receive Date: 20150121
  Receipt Date: 20150121
  Transmission Date: 20150721
  Serious: Yes (Other)
  Sender: FDA-Public Use
  Company Number: 2015-US-000366

PATIENT
  Sex: Female
  Weight: 69.8 kg

DRUGS (3)
  1. ADDERALL [Concomitant]
     Active Substance: AMPHETAMINE ASPARTATE\AMPHETAMINE SULFATE\DEXTROAMPHETAMINE SACCHARATE\DEXTROAMPHETAMINE SULFATE
  2. XYREM [Suspect]
     Active Substance: SODIUM OXYBATE
     Indication: NARCOLEPSY
     Route: 048
     Dates: start: 200903, end: 2009
  3. XANAX [Concomitant]
     Active Substance: ALPRAZOLAM

REACTIONS (9)
  - Paraesthesia [None]
  - White matter lesion [None]
  - Fall [None]
  - Temporomandibular joint syndrome [None]
  - Hypoaesthesia [None]
  - Foot fracture [None]
  - Deafness [None]
  - Neuralgia [None]
  - Ankle fracture [None]

NARRATIVE: CASE EVENT DATE: 2013
